FAERS Safety Report 12705288 (Version 1)
Quarter: 2016Q3

REPORT INFORMATION
  Report Type: Spontaneous
  Country: US (occurrence: None)
  Receive Date: 20160831
  Receipt Date: 20160831
  Transmission Date: 20161109
  Serious: No
  Sender: FDA-Public Use
  Company Number: None

PATIENT
  Age: 57 Year
  Sex: Female

DRUGS (3)
  1. SOVALDI [Suspect]
     Active Substance: SOFOSBUVIR
     Indication: CHRONIC HEPATITIS C
     Dosage: SOVALDI TAB 400MG - 400 DF PO QD
     Route: 048
     Dates: start: 20160616
  2. DAKLINZA [Suspect]
     Active Substance: DACLATASVIR
     Indication: CHRONIC HEPATITIS C
     Route: 048
     Dates: start: 20160616
  3. RIBASPHERE [Suspect]
     Active Substance: RIBAVIRIN
     Dosage: RIBASPHERE CAP 200MG - 200 DF - ORAL - 2AM AND 2PM
     Route: 048
     Dates: start: 20160711

REACTIONS (3)
  - Headache [None]
  - Decreased appetite [None]
  - Fatigue [None]

NARRATIVE: CASE EVENT DATE: 20160830
